FAERS Safety Report 7992801-8 (Version None)
Quarter: 2011Q4

REPORT INFORMATION
  Report Type: 
  Country: None (occurrence: None)
  Receive Date: 20111219
  Receipt Date: 20110131
  Transmission Date: 20120403
  Serious: No
  Sender: FDA-Public Use
  Company Number: US-ASTRAZENECA-2011SE05417

PATIENT
  Sex: Male

DRUGS (2)
  1. CRESTOR [Suspect]
     Indication: HYPERCHOLESTEROLAEMIA
     Dosage: DAILY
     Route: 048
     Dates: start: 20100401
  2. NATURAL HERBAL MEDICINES [Concomitant]

REACTIONS (5)
  - MUSCLE STRAIN [None]
  - MONOPLEGIA [None]
  - FEELING ABNORMAL [None]
  - MYALGIA [None]
  - SINUSITIS [None]
